FAERS Safety Report 23336119 (Version 5)
Quarter: 2025Q4

REPORT INFORMATION
  Report Type: Report from Study
  Country: GB (occurrence: GB)
  Receive Date: 20231225
  Receipt Date: 20251028
  Transmission Date: 20260117
  Serious: Yes (Other)
  Sender: NOVARTIS
  Company Number: GB-002147023-NVSC2023GB272854

PATIENT
  Age: 58 Year
  Sex: Male

DRUGS (3)
  1. COSENTYX [Suspect]
     Active Substance: SECUKINUMAB
     Indication: Psoriatic arthropathy
     Dosage: 150 MG (WEEK 0, 1, 2, 3, 4, MONTHLY)
     Route: 058
     Dates: start: 20231218
  2. COSENTYX [Suspect]
     Active Substance: SECUKINUMAB
     Dosage: 150 MG, QMO
     Route: 058
  3. METHOTREXATE [Concomitant]
     Active Substance: METHOTREXATE
     Indication: Product used for unknown indication
     Dosage: UNK
     Route: 065

REACTIONS (13)
  - Haemorrhoids [Unknown]
  - Haematochezia [Unknown]
  - Rectal haemorrhage [Unknown]
  - Lower respiratory tract infection [Not Recovered/Not Resolved]
  - Tooth avulsion [Unknown]
  - Nasopharyngitis [Unknown]
  - Cough [Unknown]
  - Chest discomfort [Recovered/Resolved]
  - Fatigue [Unknown]
  - Dyspnoea [Recovered/Resolved]
  - Pyrexia [Recovered/Resolved]
  - Pruritus [Unknown]
  - Malaise [Not Recovered/Not Resolved]

NARRATIVE: CASE EVENT DATE: 20231220
